FAERS Safety Report 17796875 (Version 1)
Quarter: 2020Q2

REPORT INFORMATION
  Report Type: Other
  Country: FR (occurrence: FR)
  Receive Date: 20200518
  Receipt Date: 20200518
  Transmission Date: 20200714
  Serious: Yes (Hospitalization)
  Sender: FDA-Public Use
  Company Number: FR-CADILA HEALTHCARE LIMITED-FR-ZYDUS-050877

PATIENT

DRUGS (7)
  1. SERTRALINE [Suspect]
     Active Substance: SERTRALINE HYDROCHLORIDE
     Indication: TOXICITY TO VARIOUS AGENTS
     Dosage: 600 MILLIGRAM, SINGLE
     Route: 048
     Dates: start: 20200328, end: 20200328
  2. LOXAPINE SUCCINATE. [Suspect]
     Active Substance: LOXAPINE SUCCINATE
     Indication: TOXICITY TO VARIOUS AGENTS
     Dosage: 1 GRAM, SINGLE
     Route: 048
     Dates: start: 20200328, end: 20200328
  3. ZOPICLONE [Suspect]
     Active Substance: ZOPICLONE
     Indication: TOXICITY TO VARIOUS AGENTS
     Dosage: 30 MILLIGRAM, SINGLE
     Route: 048
     Dates: start: 20200328, end: 20200328
  4. OXAZEPAM. [Suspect]
     Active Substance: OXAZEPAM
     Indication: TOXICITY TO VARIOUS AGENTS
     Dosage: 800 MILLIGRAM, SINGLE
     Route: 048
     Dates: start: 20200328, end: 20200328
  5. RISPERIDONE. [Suspect]
     Active Substance: RISPERIDONE
     Indication: TOXICITY TO VARIOUS AGENTS
     Dosage: 24 MILLIGRAM, SINGLE
     Route: 048
     Dates: start: 20200328, end: 20200328
  6. PREGABALINE [Suspect]
     Active Substance: PREGABALIN
     Indication: TOXICITY TO VARIOUS AGENTS
     Dosage: 800 MILLIGRAM, SINGLE
     Route: 048
     Dates: start: 20200328, end: 20200328
  7. MACROGOL [Concomitant]
     Active Substance: POLYETHYLENE GLYCOLS
     Indication: TOXICITY TO VARIOUS AGENTS
     Route: 048
     Dates: start: 20200328, end: 20200328

REACTIONS (1)
  - Coma [Recovered/Resolved]

NARRATIVE: CASE EVENT DATE: 20200328
